FAERS Safety Report 7998709-6 (Version None)
Quarter: 2011Q4

REPORT INFORMATION
  Report Type: 
  Country: None (occurrence: None)
  Receive Date: 20111221
  Receipt Date: 20111220
  Transmission Date: 20120403
  Serious: Yes (Hospitalization)
  Sender: FDA-Public Use
  Company Number: NL-PFIZER INC-2011309458

PATIENT
  Age: 69 Year
  Sex: Male
  Weight: 66 kg

DRUGS (6)
  1. EZETIMIBE [Concomitant]
     Dosage: UNK
     Dates: start: 20090609
  2. BERODUAL [Concomitant]
     Dosage: UNK
     Dates: start: 20080909
  3. VARENICLINE TARTRATE [Suspect]
     Indication: SMOKING CESSATION THERAPY
     Dosage: UNK
     Dates: start: 20111017, end: 20111122
  4. LEUKERAN [Concomitant]
     Dosage: UNK
     Dates: start: 20100101
  5. SPIRIVA [Concomitant]
     Dosage: UNK
     Dates: start: 20111012
  6. FLUTICASONE PROPIONATE/SALMETEROL [Concomitant]
     Dosage: UNK
     Dates: start: 20100101

REACTIONS (2)
  - RASH [None]
  - PNEUMONIA [None]
